FAERS Safety Report 6555570-4 (Version None)
Quarter: 2010Q1

REPORT INFORMATION
  Report Type: 
  Country: None (occurrence: None)
  Receive Date: 20100128
  Receipt Date: 20100120
  Transmission Date: 20100710
  Serious: Yes (Life-Threatening, Other)
  Sender: FDA-Public Use
  Company Number: GB-SANOFI-AVENTIS-200919356GDDC

PATIENT
  Age: 62 Year
  Sex: Female
  Weight: 46.5 kg

DRUGS (9)
  1. LEFLUNOMIDE [Suspect]
     Indication: RHEUMATOID ARTHRITIS
     Route: 048
     Dates: end: 20090801
  2. ARTHROTEC [Concomitant]
     Route: 048
     Dates: end: 20090801
  3. PREDNISOLONE [Concomitant]
     Route: 048
  4. VERAPAMIL [Concomitant]
     Indication: SUPRAVENTRICULAR TACHYCARDIA
     Route: 048
  5. ADCAL [Concomitant]
     Indication: OSTEOPOROSIS
     Dosage: 2 TABLETS DAILY
     Route: 048
  6. OMEPRAZOLE [Concomitant]
     Indication: ABDOMINAL PAIN
     Route: 048
  7. MERBENTYL [Concomitant]
     Indication: ABDOMINAL PAIN
     Route: 048
  8. SIMVASTATIN [Concomitant]
  9. AMITRIPTYLINE HCL [Concomitant]
     Dates: end: 20090801

REACTIONS (10)
  - ABDOMINAL PAIN [None]
  - CONFUSIONAL STATE [None]
  - DECREASED APPETITE [None]
  - HEPATIC FUNCTION ABNORMAL [None]
  - HEPATOMEGALY [None]
  - JAUNDICE [None]
  - LIVER FUNCTION TEST ABNORMAL [None]
  - MYELODYSPLASTIC SYNDROME [None]
  - NAUSEA [None]
  - WEIGHT DECREASED [None]
